FAERS Safety Report 8457950 (Version 2)
Quarter: 2013Q2

REPORT INFORMATION
  Report Type: Spontaneous
  Country: US (occurrence: None)
  Receive Date: 20120227
  Receipt Date: 20120525
  Transmission Date: 20140414
  Serious: Yes (Hospitalization)
  Sender: FDA-Public Use
  Company Number: 341707

PATIENT
  Age: 63 Year
  Sex: Female
  Weight: 84.8 kg

DRUGS (3)
  1. VICTOZA [Suspect]
     Indication: TYPE 2 DIABETES MELLITUS
     Dosage: , SUBCUTANEOUS
     Route: 058
     Dates: start: 201011
  2. VICTOZA [Suspect]
     Dosage: 1.8 MG, QD, SUBCUTANEOUS
     Route: 058
  3. GLIPIZIDE [Concomitant]

REACTIONS (5)
  - BLOOD GLUCOSE INCREASED [None]
  - DEHYDRATION [None]
  - ABDOMINAL PAIN [None]
  - DIARRHOEA [None]
  - CONSTIPATION [None]
